FAERS Safety Report 8802573 (Version 1)
Quarter: 2012Q4

REPORT INFORMATION
  Report Type: 
  Country: CA (occurrence: CA)
  Receive Date: 20120921
  Receipt Date: 20120921
  Transmission Date: 20130627
  Serious: Yes (Other)
  Sender: FDA-Public Use
  Company Number: PHHY2012CA080596

PATIENT
  Age: 69 Year
  Sex: Female

DRUGS (4)
  1. VANCOMYCIN [Suspect]
     Dosage: 1 g, Q8H
     Route: 042
  2. GENTAMICIN [Concomitant]
     Dosage: 60 mg, Q8H
     Route: 042
  3. RIFAMPIN [Concomitant]
     Dosage: 300 mg, BID
     Route: 048
  4. CEFTRIAXONE [Concomitant]

REACTIONS (1)
  - Tremor [Recovered/Resolved]
